FAERS Safety Report 7241347-3 (Version None)
Quarter: 2011Q1

REPORT INFORMATION
  Report Type: 
  Country: None (occurrence: None)
  Receive Date: 20110124
  Receipt Date: 20110117
  Transmission Date: 20110831
  Serious: Yes (Hospitalization)
  Sender: FDA-Public Use
  Company Number: IR-ROCHE-753841

PATIENT
  Age: 25 Year
  Sex: Female
  Weight: 56 kg

DRUGS (3)
  1. CELLCEPT [Concomitant]
     Dosage: DOSE: 500*2 GRAM, FREQUENCY: DAILY
     Route: 048
     Dates: start: 20080101
  2. PREDNISOLONE [Concomitant]
     Dosage: FREQUENCY: DAILY
     Route: 048
     Dates: start: 20080101
  3. MIRCERA [Suspect]
     Route: 042
     Dates: start: 20101001, end: 20101101

REACTIONS (2)
  - GASTROINTESTINAL HAEMORRHAGE [None]
  - ANAEMIA [None]
